FAERS Safety Report 5809354-2 (Version None)
Quarter: 2008Q3

REPORT INFORMATION
  Report Type: 
  Country: None (occurrence: None)
  Receive Date: 20080714
  Receipt Date: 20080703
  Transmission Date: 20090109
  Serious: Yes (Hospitalization, Other)
  Sender: FDA-Public Use
  Company Number: PHHY2008BR06815

PATIENT
  Age: 29 Year
  Sex: Female
  Weight: 54 kg

DRUGS (4)
  1. VISKEN [Suspect]
     Indication: PREGNANCY INDUCED HYPERTENSION
     Dosage: 1 DF, BID
     Route: 048
     Dates: start: 20080424
  2. METHYLDOPA [Concomitant]
     Indication: HYPERTENSION
     Dosage: 500 MG, Q8H
     Route: 048
     Dates: start: 20080424
  3. NATALCARE [Concomitant]
     Indication: PREGNANCY
     Dosage: 1 DF, QD
     Route: 048
  4. FERROUS SULFATE TAB [Concomitant]
     Indication: ANAEMIA
     Dosage: 40 MG, QD
     Route: 048
     Dates: start: 20080424

REACTIONS (4)
  - CAESAREAN SECTION [None]
  - DRUG EXPOSURE DURING PREGNANCY [None]
  - HYPERTENSION [None]
  - TREMOR [None]
